FAERS Safety Report 12308842 (Version 1)
Quarter: 2016Q2

REPORT INFORMATION
  Report Type: Spontaneous
  Country: US (occurrence: None)
  Receive Date: 20160426
  Receipt Date: 20160426
  Transmission Date: 20160815
  Serious: No
  Sender: FDA-Public Use
  Company Number: None

PATIENT

DRUGS (1)
  1. HYDROMORPHONE, 1MG/ML [Suspect]
     Active Substance: HYDROMORPHONE

REACTIONS (1)
  - Product label issue [None]

NARRATIVE: CASE EVENT DATE: 20160407
